FAERS Safety Report 5097183-X (Version None)
Quarter: 2006Q3

REPORT INFORMATION
  Report Type: 
  Country: None (occurrence: None)
  Receive Date: 20060906
  Receipt Date: 20060824
  Transmission Date: 20061208
  Serious: Yes (Hospitalization)
  Sender: FDA-Public Use
  Company Number: US-AMGEN-KDL184289

PATIENT
  Sex: Female
  Weight: 196.1 kg

DRUGS (3)
  1. PROCRIT [Suspect]
     Indication: ANAEMIA
     Dates: start: 20060518
  2. IBUPROFEN [Concomitant]
  3. IRON [Concomitant]

REACTIONS (4)
  - HOSPITALISATION [None]
  - PRURITUS [None]
  - RASH MACULO-PAPULAR [None]
  - WHEEZING [None]
